FAERS Safety Report 18234614 (Version 1)
Quarter: 2020Q3

REPORT INFORMATION
  Report Type: Spontaneous
  Country: IT (occurrence: IT)
  Receive Date: 20200904
  Receipt Date: 20200904
  Transmission Date: 20201103
  Serious: Yes (Other)
  Sender: FDA-Public Use
  Company Number: NVSC2020IT241599

PATIENT
  Age: 14 Year
  Sex: Female

DRUGS (4)
  1. PAZOPANIB [Suspect]
     Active Substance: PAZOPANIB
     Indication: ALVEOLAR RHABDOMYOSARCOMA
     Dosage: 450 MG/M2, QD (MAXIMUM DOSE 600 MG/DAY) FOR 2 CYCLES
     Route: 065
  2. IRINOTECAN [Suspect]
     Active Substance: IRINOTECAN
     Indication: ALVEOLAR RHABDOMYOSARCOMA
     Dosage: 50 MG, QD FOR 5 DAYS FOR 2 CYCLES
     Route: 042
  3. VINCRISTINE [Suspect]
     Active Substance: VINCRISTINE
     Indication: ALVEOLAR RHABDOMYOSARCOMA
     Dosage: 1.5 MG/M2 ON DAYS 1 AND 8 FOR 2 CYCLES
     Route: 042
  4. CEFIXIME. [Concomitant]
     Active Substance: CEFIXIME
     Indication: PROPHYLAXIS AGAINST DIARRHOEA
     Dosage: 8 MG/KG ONCE DAILY (MAXIMUM 400 MG/DAY) 2 CYCLES
     Route: 048

REACTIONS (2)
  - Alveolar rhabdomyosarcoma [Unknown]
  - Malignant neoplasm progression [Unknown]
